FAERS Safety Report 16811936 (Version 1)
Quarter: 2019Q3

REPORT INFORMATION
  Report Type: Spontaneous
  Country: FR (occurrence: FR)
  Receive Date: 20190916
  Receipt Date: 20190916
  Transmission Date: 20191005
  Serious: Yes (Hospitalization)
  Sender: FDA-Public Use
  Company Number: FR-MYLANLABS-2019M1085770

PATIENT
  Age: 35 Year
  Sex: Male
  Weight: 85 kg

DRUGS (6)
  1. DOLIPRANE [Concomitant]
     Active Substance: ACETAMINOPHEN
     Indication: ANKYLOSING SPONDYLITIS
     Dosage: UNK
     Route: 065
     Dates: start: 2018
  2. AMOXICILLIN. [Concomitant]
     Active Substance: AMOXICILLIN
     Indication: PHARYNGITIS
     Dosage: UNK
     Route: 065
  3. OMEPRAZOLE. [Suspect]
     Active Substance: OMEPRAZOLE
     Indication: ANKYLOSING SPONDYLITIS
     Dosage: UNK
     Route: 065
     Dates: start: 2018
  4. COSENTYX [Suspect]
     Active Substance: SECUKINUMAB
     Indication: ANKYLOSING SPONDYLITIS
     Dosage: 150 MILLIGRAM, Q2W
     Route: 058
     Dates: start: 20190124
  5. CHRONO INDOCID [Concomitant]
     Active Substance: INDOMETHACIN
     Indication: ANKYLOSING SPONDYLITIS
     Dosage: UNK
     Dates: start: 2018
  6. INDOCID                            /00003801/ [Concomitant]
     Active Substance: INDOMETHACIN
     Indication: ANKYLOSING SPONDYLITIS
     Dosage: UNK
     Route: 065
     Dates: start: 2018

REACTIONS (2)
  - Appendicitis [Recovered/Resolved]
  - Abdominal pain lower [Unknown]

NARRATIVE: CASE EVENT DATE: 20190322
